FAERS Safety Report 7836518-9 (Version None)
Quarter: 2011Q4

REPORT INFORMATION
  Report Type: 
  Country: None (occurrence: None)
  Receive Date: 20111024
  Receipt Date: 20110629
  Transmission Date: 20120403
  Serious: No
  Sender: FDA-Public Use
  Company Number: US-ABBOTT-11P-163-0835751-00

PATIENT
  Sex: Female
  Weight: 78.996 kg

DRUGS (3)
  1. IBUPROFEN [Concomitant]
     Indication: ABDOMINAL PAIN
     Dosage: 3 IN 1 D AS NEEDED
     Route: 048
     Dates: start: 20101201
  2. GAS-X [Concomitant]
     Indication: FLATULENCE
     Dosage: 1 IN 1 D AS NEEDED
     Dates: start: 20110101
  3. LUPRON DEPOT [Suspect]
     Indication: ENDOMETRIOSIS
     Route: 030
     Dates: start: 20110509, end: 20110606

REACTIONS (3)
  - FLATULENCE [None]
  - ABDOMINAL PAIN LOWER [None]
  - ABDOMINAL DISTENSION [None]
